FAERS Safety Report 8729568 (Version 1)
Quarter: 2012Q4

REPORT INFORMATION
  Report Type: 
  Country: US (occurrence: US)
  Receive Date: 20120912
  Receipt Date: 20120912
  Transmission Date: 20130627
  Serious: Yes (Other)
  Sender: FDA-Public Use
  Company Number: US-ROCHE-1101410

PATIENT
  Sex: Female

DRUGS (2)
  1. ACTIVASE [Suspect]
     Indication: ACUTE MYOCARDIAL INFARCTION
     Route: 065
  2. LOPRESSOR [Concomitant]

REACTIONS (5)
  - Angina pectoris [Unknown]
  - Headache [Unknown]
  - Hypotension [Unknown]
  - Costochondritis [Unknown]
  - Dysuria [Unknown]
